FAERS Safety Report 8819721 (Version 2)
Quarter: 2014Q3

REPORT INFORMATION
  Report Type: Report from Study
  Country: US (occurrence: US)
  Receive Date: 20121001
  Receipt Date: 20140904
  Transmission Date: 20150326
  Serious: Yes (Hospitalization)
  Sender: FDA-Public Use
  Company Number: US-ROCHE-1125709

PATIENT

DRUGS (3)
  1. HERCEPTIN [Suspect]
     Active Substance: TRASTUZUMAB
     Indication: BREAST CANCER METASTATIC
     Dosage: LOADING DOSE
     Route: 065
     Dates: start: 19981112
  2. RITUXAN [Concomitant]
     Active Substance: RITUXIMAB
     Indication: MALIGNANT LYMPHOID NEOPLASM
     Route: 065
     Dates: start: 20030729
  3. HERCEPTIN [Suspect]
     Active Substance: TRASTUZUMAB
     Dosage: MAINTENANCE DOSE
     Route: 065

REACTIONS (3)
  - Malaise [Unknown]
  - Respiratory arrest [Unknown]
  - Pain [Unknown]
